FAERS Safety Report 22157554 (Version 3)
Quarter: 2023Q2

REPORT INFORMATION
  Report Type: Spontaneous
  Country: US (occurrence: US)
  Receive Date: 20230330
  Receipt Date: 20230531
  Transmission Date: 20230721
  Serious: Yes (Death, Hospitalization)
  Sender: FDA-Public Use
  Company Number: US-KARYOPHARM-2023KPT000852

PATIENT

DRUGS (11)
  1. XPOVIO [Suspect]
     Active Substance: SELINEXOR
     Indication: Plasma cell myeloma
     Dosage: 80 MG, 2X/WEEK FOR 4 WEEKS ON, THEN 1 WEEK OFF
     Route: 048
     Dates: start: 20230218, end: 20230521
  2. MEMANTINE [Concomitant]
     Active Substance: MEMANTINE
  3. ALLOPURINOL [Concomitant]
     Active Substance: ALLOPURINOL
  4. XARELTO [Concomitant]
     Active Substance: RIVAROXABAN
  5. LOSARTAN POTASSIUM [Concomitant]
     Active Substance: LOSARTAN POTASSIUM
  6. ROSUVASTATIN CALCIUM [Concomitant]
     Active Substance: ROSUVASTATIN CALCIUM
  7. POTASSIUM CHLORIDE [Concomitant]
     Active Substance: POTASSIUM CHLORIDE
  8. LEVETIRACETAM [Concomitant]
     Active Substance: LEVETIRACETAM
  9. ZOFRAN [Concomitant]
     Active Substance: ONDANSETRON HYDROCHLORIDE
  10. FUROSEMIDE [Concomitant]
     Active Substance: FUROSEMIDE
  11. DEXAMETHASONE [Concomitant]
     Active Substance: DEXAMETHASONE

REACTIONS (6)
  - Death [Fatal]
  - Cough [Unknown]
  - Dysphagia [Unknown]
  - Gait disturbance [Unknown]
  - Hyponatraemia [Unknown]
  - Syncope [Unknown]

NARRATIVE: CASE EVENT DATE: 20230101
